FAERS Safety Report 6731236-2 (Version None)
Quarter: 2010Q2

REPORT INFORMATION
  Report Type: 
  Country: None (occurrence: None)
  Receive Date: 20100518
  Receipt Date: 20100518
  Transmission Date: 20101027
  Serious: No
  Sender: FDA-Public Use
  Company Number: None

PATIENT

DRUGS (7)
  1. GABAPENTIN [Suspect]
     Dosage: GABAPENTIN 800MG TAKE 1 TABLET FOR TIMES A DAY
     Dates: start: 20100113
  2. DOXAZOSIN MESYLATE [Concomitant]
  3. NEXIUM [Concomitant]
  4. LEXAPRO [Concomitant]
  5. KEPPRA [Concomitant]
  6. CYMBALTA [Concomitant]
  7. AMITRIPTYLINE [Concomitant]

REACTIONS (2)
  - CHOKING [None]
  - DYSPHAGIA [None]
